FAERS Safety Report 9486912 (Version 1)
Quarter: 2013Q3

REPORT INFORMATION
  Report Type: Spontaneous
  Country: US (occurrence: None)
  Receive Date: 20130827
  Receipt Date: 20130827
  Transmission Date: 20140515
  Serious: Yes (Hospitalization, Other)
  Sender: FDA-Public Use
  Company Number: JPI-P-034581

PATIENT
  Age: 52 Year
  Sex: Female
  Weight: 92.08 kg

DRUGS (1)
  1. XYREM [Suspect]
     Indication: SOMNOLENCE
     Dosage: 2.25 GM 2 IN 1 D
     Route: 048
     Dates: start: 20111230

REACTIONS (3)
  - Shoulder arthroplasty [None]
  - Knee arthroplasty [None]
  - Hip arthroplasty [None]
